FAERS Safety Report 6977330-2 (Version None)
Quarter: 2010Q3

REPORT INFORMATION
  Report Type: 
  Country: None (occurrence: None)
  Receive Date: 20100910
  Receipt Date: 20100823
  Transmission Date: 20110219
  Serious: Yes (Other)
  Sender: FDA-Public Use
  Company Number: PHRM2002FR01458

PATIENT
  Sex: Female
  Weight: 50 kg

DRUGS (5)
  1. COMTAN [Suspect]
     Indication: PARKINSON'S DISEASE
     Dosage: 200 MG, 6QD
     Route: 048
     Dates: start: 19990527, end: 20000505
  2. SINEMET [Concomitant]
     Indication: PARKINSON'S DISEASE
     Dosage: 100 MG, 8QD
     Route: 048
     Dates: start: 19940101
  3. PARLODEL [Concomitant]
     Indication: PARKINSON'S DISEASE
     Dosage: 10 MG, TID
     Dates: start: 19960101
  4. MOTILIUM [Concomitant]
  5. MANTADIX [Concomitant]

REACTIONS (2)
  - ANAEMIA [None]
  - BLOOD IRON DECREASED [None]
